FAERS Safety Report 5168996-0 (Version None)
Quarter: 2006Q4

REPORT INFORMATION
  Report Type: 
  Country: None (occurrence: None)
  Receive Date: 20061211
  Receipt Date: 20061113
  Transmission Date: 20070319
  Serious: Yes (Other)
  Sender: FDA-Public Use
  Company Number: MX-AVENTIS-200622157GDDC

PATIENT
  Age: 30 Year
  Sex: Female
  Weight: 56 kg

DRUGS (5)
  1. ARAVA [Suspect]
     Indication: RHEUMATOID ARTHRITIS
     Route: 048
     Dates: start: 20060901, end: 20061120
  2. METHOTREXATE [Concomitant]
     Indication: RHEUMATOID ARTHRITIS
     Route: 048
     Dates: start: 20010101
  3. IMURAN                             /00001501/ [Concomitant]
     Indication: IMMUNE SYSTEM DISORDER
     Dosage: DOSE: UNK
     Route: 048
     Dates: start: 20010101
  4. CALCORT [Concomitant]
     Indication: ANTIINFLAMMATORY THERAPY
     Route: 048
     Dates: start: 20040101
  5. PLAQUENIL                          /00072601/ [Concomitant]
     Indication: RHEUMATOID ARTHRITIS
     Dosage: DOSE: UNK
     Route: 048
     Dates: start: 20040101

REACTIONS (9)
  - ALOPECIA [None]
  - ANXIETY [None]
  - ARTHRALGIA [None]
  - ARTHRITIS [None]
  - INFLAMMATION [None]
  - NIGHTMARE [None]
  - PHARYNGEAL ULCERATION [None]
  - PHARYNGITIS [None]
  - VISUAL FIELD DEFECT [None]
